FAERS Safety Report 9629706 (Version 2)
Quarter: 2013Q4

REPORT INFORMATION
  Report Type: Report from Study
  Country: CZ (occurrence: CZ)
  Receive Date: 20131017
  Receipt Date: 20131106
  Transmission Date: 20140711
  Serious: Yes (Other)
  Sender: FDA-Public Use
  Company Number: CZ-B.I. PHARMACEUTICALS,INC./RIDGEFIELD-2013-BI-32936GD

PATIENT
  Sex: 0

DRUGS (3)
  1. CLONIDINE [Suspect]
     Indication: SEDATIVE THERAPY
     Dosage: DOSE: 2MCG/KG
     Route: 048
  2. MIDAZOLAM [Suspect]
     Indication: SEDATIVE THERAPY
     Dosage: DOSE: 0.3MG/KG
     Route: 048
  3. KETAMINE [Suspect]
     Indication: SEDATIVE THERAPY
     Dosage: DOSE: 5 MG/KG
     Route: 048

REACTIONS (2)
  - Sedation [Unknown]
  - Obstructive airways disorder [Recovered/Resolved]
